FAERS Safety Report 12658912 (Version 1)
Quarter: 2016Q3

REPORT INFORMATION
  Report Type: Report from Study
  Country: US (occurrence: US)
  Receive Date: 20160817
  Receipt Date: 20160817
  Transmission Date: 20161109
  Serious: Yes (Hospitalization, Other)
  Sender: FDA-Public Use
  Company Number: US-AMGEN-USASL2016104839

PATIENT
  Age: 63 Year
  Sex: Female
  Weight: 61.2 kg

DRUGS (3)
  1. PROLIA [Suspect]
     Active Substance: DENOSUMAB
     Indication: OSTEOPOROSIS POSTMENOPAUSAL
     Dosage: UNK
     Route: 065
     Dates: start: 20160223
  2. HARVONI [Concomitant]
     Active Substance: LEDIPASVIR\SOFOSBUVIR
  3. IMODIUM [Concomitant]
     Active Substance: LOPERAMIDE HYDROCHLORIDE

REACTIONS (9)
  - Fracture [Recovering/Resolving]
  - Acute kidney injury [Recovered/Resolved]
  - Paralysis [Recovering/Resolving]
  - Memory impairment [Recovering/Resolving]
  - Intestinal obstruction [Recovering/Resolving]
  - Fatigue [Recovering/Resolving]
  - Joint range of motion decreased [Recovering/Resolving]
  - Loss of consciousness [Recovering/Resolving]
  - Dysarthria [Recovering/Resolving]
